FAERS Safety Report 5369494-1 (Version None)
Quarter: 2007Q2

REPORT INFORMATION
  Report Type: 
  Country: None (occurrence: None)
  Receive Date: 20070625
  Receipt Date: 20070614
  Transmission Date: 20071010
  Serious: Yes (Other)
  Sender: FDA-Public Use
  Company Number: B0466038A

PATIENT
  Age: 54 Year
  Sex: Female

DRUGS (4)
  1. ACETAMINOPHEN [Suspect]
     Indication: OSTEOARTHRITIS
     Route: 048
     Dates: start: 20070330, end: 20070330
  2. XANAX [Concomitant]
  3. AURORIX [Concomitant]
  4. PANADOL [Concomitant]
     Dosage: 1CAPL AS REQUIRED
     Route: 048

REACTIONS (8)
  - DYSGEUSIA [None]
  - MALAISE [None]
  - PARAESTHESIA [None]
  - PARAESTHESIA ORAL [None]
  - PHARYNGEAL OEDEMA [None]
  - SHOCK [None]
  - SWOLLEN TONGUE [None]
  - VOMITING [None]
